FAERS Safety Report 9831984 (Version 1)
Quarter: 2014Q1

REPORT INFORMATION
  Report Type: Spontaneous
  Country: US (occurrence: US)
  Receive Date: 20140121
  Receipt Date: 20140121
  Transmission Date: 20141002
  Serious: Yes (Hospitalization, Other)
  Sender: FDA-Public Use
  Company Number: US-UCBSA-109057

PATIENT
  Sex: Male

DRUGS (6)
  1. CIMZIA [Suspect]
     Indication: CROHN^S DISEASE
     Dosage: UNKNOWN DOSE, SHOTS IN THE BELLY
  2. HUMIRA [Suspect]
     Dosage: UNKNOWN DOSE, SHOTS IN THE BELLY
  3. REMICADE [Suspect]
     Dosage: UNKNOWN DOSE
  4. ENTOCORT [Suspect]
     Dosage: UNKNOWN DOSE
  5. PREDNISONE [Suspect]
     Dosage: UNKNOWN DOSE
  6. 6-MP [Suspect]

REACTIONS (4)
  - Abdominal adhesions [Unknown]
  - Intestinal ulcer [Recovered/Resolved]
  - Scar [Unknown]
  - Unevaluable event [Recovering/Resolving]
